FAERS Safety Report 9308810 (Version 2)
Quarter: 2013Q2

REPORT INFORMATION
  Report Type: Spontaneous
  Country: JP (occurrence: JP)
  Receive Date: 20130524
  Receipt Date: 20130607
  Transmission Date: 20140414
  Serious: Yes (Death, Life-Threatening)
  Sender: FDA-Public Use
  Company Number: JP-ROCHE-1215344

PATIENT
  Age: 57 Year
  Sex: Male
  Weight: 58 kg

DRUGS (11)
  1. AVASTIN [Suspect]
     Indication: RECTAL CANCER
     Dosage: DOSAGE IS UNCERTAIN
     Route: 041
     Dates: start: 20130402, end: 20130402
  2. XELODA [Suspect]
     Indication: RECTAL CANCER
     Route: 048
     Dates: start: 20130402, end: 20130402
  3. ELPLAT [Suspect]
     Indication: RECTAL CANCER
     Route: 041
     Dates: start: 20130402, end: 20130402
  4. MUCODYNE [Concomitant]
     Dosage: DOSAGE IS UNCERTAIN.
     Route: 048
     Dates: end: 201304
  5. SPIRIVA [Concomitant]
     Dosage: DOSAGE IS UNCERTAIN.
     Route: 055
     Dates: end: 201304
  6. BENZALIN [Concomitant]
     Dosage: DOSAGE IS UNCERTAIN
     Route: 048
     Dates: end: 201304
  7. ETIZOLAM [Concomitant]
     Dosage: DOSAGE IS UNCERTAIN
     Route: 048
     Dates: end: 201304
  8. ABILIFY [Concomitant]
     Dosage: DOSAGE IS UNCERTAIN
     Route: 048
     Dates: end: 201304
  9. TAKEPRON [Concomitant]
     Route: 048
     Dates: start: 20130307, end: 201304
  10. BERIZYM [Concomitant]
     Route: 048
     Dates: start: 20130312, end: 201304
  11. GASMOTIN [Concomitant]
     Route: 048
     Dates: start: 20130312, end: 201304

REACTIONS (5)
  - Large intestine perforation [Fatal]
  - Melaena [Fatal]
  - Multi-organ failure [Fatal]
  - Sepsis [Fatal]
  - Blood pressure decreased [Not Recovered/Not Resolved]
